FAERS Safety Report 6582085-X (Version None)
Quarter: 2010Q1

REPORT INFORMATION
  Report Type: 
  Country: None (occurrence: None)
  Receive Date: 20100216
  Receipt Date: 20100204
  Transmission Date: 20100710
  Serious: Yes (Life-Threatening, Hospitalization, Disabling)
  Sender: FDA-Public Use
  Company Number: GB-RANBAXY-2010RR-30771

PATIENT
  Age: 29 Year
  Sex: Female
  Weight: 55 kg

DRUGS (4)
  1. MIRTAZAPINE [Suspect]
     Indication: DEPRESSION
     Dosage: UNK
     Route: 065
     Dates: start: 20050118, end: 20050119
  2. MIRTAZAPINE [Suspect]
     Indication: OVERDOSE
     Dosage: 28 DF, UNK
     Route: 065
     Dates: start: 20050118
  3. PARACETAMOL [Suspect]
     Dosage: 6 DF, QD
     Route: 065
  4. ZOPICLONE [Concomitant]
     Dosage: 1 DF, QD
     Route: 065
     Dates: end: 20041026

REACTIONS (4)
  - HEPATIC FAILURE [None]
  - JAUNDICE [None]
  - OVERDOSE [None]
  - PRURITUS [None]
